FAERS Safety Report 9095413 (Version 1)
Quarter: 2013Q1

REPORT INFORMATION
  Report Type: Spontaneous
  Country: US (occurrence: None)
  Receive Date: 20130123
  Receipt Date: 20130123
  Transmission Date: 20140127
  Serious: Yes (Hospitalization, Other)
  Sender: FDA-Public Use
  Company Number: 1301-050

PATIENT
  Age: 14 Year
  Sex: Female
  Weight: 60.78 kg

DRUGS (12)
  1. ARCALYST [Suspect]
     Indication: BEHCET^S SYNDROME
     Route: 058
     Dates: start: 201201
  2. COLCRYS (COLCHICINE) [Concomitant]
  3. TRENTAL (PENTOXIFYLLINE) [Concomitant]
  4. SINGULAIR [Concomitant]
  5. FLUTICORT (FLUTICASONE PROPIONATE) [Concomitant]
  6. MOBIC (MELOXICAM) [Concomitant]
  7. CRYSELLE 28 (ETHINYL ESTRADIOL W/NORGESTREL) [Concomitant]
  8. PENICILLIN (BENZYLPENICILLIN) [Concomitant]
  9. NORTRIPTYLINE (NORTRIPTYLINE) [Concomitant]
  10. KEPRA (LEVETIRACETAM) [Concomitant]
  11. ZOFRAN (ONDANSETRON) [Concomitant]
  12. ZANTAC (RANITIDINE HYDROCHLORIDE) [Concomitant]

REACTIONS (9)
  - Cholecystectomy [None]
  - Appendicectomy [None]
  - Pneumonia [None]
  - Autonomic nervous system imbalance [None]
  - Pharyngitis streptococcal [None]
  - Ingrowing nail [None]
  - Weight decreased [None]
  - Gastrointestinal disorder [None]
  - Dehydration [None]
